FAERS Safety Report 15136194 (Version 1)
Quarter: 2018Q3

REPORT INFORMATION
  Report Type: Spontaneous
  Country: US (occurrence: US)
  Receive Date: 20180712
  Receipt Date: 20180712
  Transmission Date: 20181010
  Serious: Yes (Other)
  Sender: FDA-Public Use
  Company Number: US-AMGEN-USASP2018093087

PATIENT
  Age: 65 Year
  Sex: Female

DRUGS (1)
  1. ENBREL [Suspect]
     Active Substance: ETANERCEPT
     Indication: RHEUMATOID ARTHRITIS
     Dosage: 50 MG, QWK
     Route: 058
     Dates: start: 20180524

REACTIONS (4)
  - Swelling [Not Recovered/Not Resolved]
  - Pharyngitis streptococcal [Unknown]
  - Pain [Not Recovered/Not Resolved]
  - Product storage error [Unknown]

NARRATIVE: CASE EVENT DATE: 2018
